FAERS Safety Report 19050178 (Version 1)
Quarter: 2021Q1

REPORT INFORMATION
  Report Type: Spontaneous
  Country: US (occurrence: US)
  Receive Date: 20210323
  Receipt Date: 20210323
  Transmission Date: 20210420
  Serious: No
  Sender: FDA-Public Use
  Company Number: US-ALXN-A202103504

PATIENT
  Age: 33 Year
  Sex: Male

DRUGS (3)
  1. ULTOMIRIS [Suspect]
     Active Substance: RAVULIZUMAB-CWVZ
     Indication: PAROXYSMAL NOCTURNAL HAEMOGLOBINURIA
     Dosage: UNK
     Route: 042
     Dates: start: 2019
  2. SOLIRIS [Suspect]
     Active Substance: ECULIZUMAB
     Dosage: HIGHER DOSE, EVERY 10 DAYS
     Route: 042
     Dates: end: 201903
  3. SOLIRIS [Suspect]
     Active Substance: ECULIZUMAB
     Indication: PAROXYSMAL NOCTURNAL HAEMOGLOBINURIA
     Dosage: LOWER DOSE, Q2W
     Route: 042
     Dates: start: 201612

REACTIONS (4)
  - Constipation [Unknown]
  - Mood swings [Unknown]
  - Infusion site pain [Unknown]
  - Infusion site discomfort [Unknown]
